FAERS Safety Report 5253503-4 (Version None)
Quarter: 2007Q1

REPORT INFORMATION
  Report Type: 
  Country: None (occurrence: None)
  Receive Date: 20070226
  Receipt Date: 20070213
  Transmission Date: 20070707
  Serious: Yes (Other)
  Sender: FDA-Public Use
  Company Number: 2007302424

PATIENT
  Age: 88 Year
  Sex: Female
  Weight: 56.7 kg

DRUGS (13)
  1. ROGAINE [Suspect]
     Indication: HYPOTRICHOSIS
     Dosage: 1 ML TWICE A DAY (1 ML, 2 IN 1 D), TOPICAL
     Route: 061
  2. CITRUCEL (METHYLCELLULOSE) [Concomitant]
  3. HYOSCYAMINE (HYOSCYAMINE) [Concomitant]
  4. ALEVE [Concomitant]
  5. QUININE SULFATE [Concomitant]
  6. PRILOSEC [Concomitant]
  7. VITAMIN B12 [Concomitant]
  8. MICARDIS (TELMISARTATN) [Concomitant]
  9. TYLENOL [Concomitant]
  10. CALCIUM (CALCIUM) [Concomitant]
  11. AMITRIPTYLINE HCL [Concomitant]
  12. METOCLOPRAMIDE [Concomitant]
  13. ESTRADIOL [Concomitant]

REACTIONS (4)
  - HEADACHE [None]
  - HYPERTRICHOSIS [None]
  - SCAB [None]
  - SURGERY [None]
